FAERS Safety Report 8121924-8 (Version None)
Quarter: 2012Q1

REPORT INFORMATION
  Report Type: 
  Country: None (occurrence: None)
  Receive Date: 20120208
  Receipt Date: 20120206
  Transmission Date: 20120608
  Serious: Yes (Other)
  Sender: FDA-Public Use
  Company Number: US-PFIZER INC-2012032398

PATIENT
  Sex: Female
  Weight: 72.562 kg

DRUGS (1)
  1. TIKOSYN [Suspect]
     Indication: ATRIAL FIBRILLATION
     Dosage: 0.25 MG, 2X/DAY
     Route: 048
     Dates: start: 20090101, end: 20120101

REACTIONS (2)
  - DRUG INEFFECTIVE [None]
  - CARDIAC FIBRILLATION [None]
